FAERS Safety Report 7827128-8 (Version None)
Quarter: 2011Q4

REPORT INFORMATION
  Report Type: 
  Country: None (occurrence: None)
  Receive Date: 20111020
  Receipt Date: 20111011
  Transmission Date: 20120403
  Serious: Yes (Hospitalization, Other)
  Sender: FDA-Public Use
  Company Number: TW-PFIZER INC-2011243841

PATIENT
  Age: 67 Year
  Sex: Male

DRUGS (1)
  1. SUNITINIB MALATE [Suspect]
     Indication: METASTATIC RENAL CELL CARCINOMA
     Dosage: 37.5 MG, DAILY
     Route: 048
     Dates: start: 20081127, end: 20081218

REACTIONS (3)
  - RENAL FAILURE [None]
  - NEPHROTIC SYNDROME [None]
  - RENAL TUBULAR NECROSIS [None]
